FAERS Safety Report 9611224 (Version 1)
Quarter: 2013Q4

REPORT INFORMATION
  Report Type: Spontaneous
  Country: US (occurrence: US)
  Receive Date: 20131009
  Receipt Date: 20131009
  Transmission Date: 20140711
  Serious: Yes (Life-Threatening, Hospitalization)
  Sender: FDA-Public Use
  Company Number: US-B.I. PHARMACEUTICALS,INC./RIDGEFIELD-2013-BI-31885BP

PATIENT
  Age: 56 Year
  Sex: Male
  Weight: 73 kg

DRUGS (15)
  1. MICARDIS [Suspect]
     Indication: HYPERTENSION
     Dosage: 40 MG
     Route: 048
     Dates: start: 20130814, end: 20130828
  2. ACIPHEX [Concomitant]
     Indication: DYSPEPSIA
     Dosage: 40 MG
     Route: 048
  3. LIPITOR [Concomitant]
     Indication: BLOOD CHOLESTEROL INCREASED
     Dosage: 20 MG
     Route: 048
  4. ADVAIR [Concomitant]
     Dosage: 250MCG/50MCG; DAILY DOSE: 500MCG/100MCG
     Route: 055
  5. IMDUR [Concomitant]
     Indication: ANGINA PECTORIS
     Dosage: 120 MG
     Route: 048
  6. CARVEDILOL [Concomitant]
     Indication: HYPERTENSION
     Dosage: 50 MG
     Route: 048
  7. ASPIRIN [Concomitant]
     Dosage: 81 MG
     Route: 048
  8. FIBER TAB [Concomitant]
     Indication: CONSTIPATION
     Dosage: 1000 MG
     Route: 048
  9. HYDRALAZINE [Concomitant]
     Indication: HYPERTENSION
     Dosage: 150 MG
     Route: 048
  10. COLACE [Concomitant]
     Indication: FAECES HARD
     Dosage: 100 MG
     Route: 048
  11. FISH OIL [Concomitant]
     Dosage: 1000 MG
     Route: 048
  12. LORAZEPAM [Concomitant]
     Indication: CONVULSION
     Route: 048
  13. ZOLOFT [Concomitant]
     Indication: DEPRESSION
     Dosage: 50 MG
     Route: 048
  14. PROVENTIL [Concomitant]
     Route: 055
  15. NEURONTIN [Concomitant]
     Indication: CONVULSION
     Dosage: 1800 MG
     Route: 048

REACTIONS (1)
  - Anaphylactic reaction [Recovered/Resolved]
